FAERS Safety Report 9015667 (Version 1)
Quarter: 2013Q1

REPORT INFORMATION
  Report Type: Spontaneous
  Country: JP (occurrence: None)
  Receive Date: 20130102
  Receipt Date: 20130102
  Transmission Date: 20140127
  Serious: Yes (Other)
  Sender: FDA-Public Use
  Company Number: DSA_61609_2012

PATIENT
  Age: 66 Year
  Sex: Male

DRUGS (3)
  1. FLUOROURACIL (FLUOROURACIL) [Suspect]
     Indication: OESOPHAGEAL CARCINOMA
     Dosage: (DF)
     Dates: start: 201008
  2. DOCETAXEL (DOCETAXEL) [Suspect]
     Indication: OESOPHAGEAL CARCINOMA
     Dosage: (DF)
     Dates: start: 201008
  3. CISPLATIN (CISPLATIN) [Suspect]
     Indication: OESOPHAGEAL CARCINOMA
     Dosage: (DF)
     Dates: start: 201008

REACTIONS (1)
  - White blood cell count decreased [None]
